FAERS Safety Report 24731884 (Version 1)
Quarter: 2024Q4

REPORT INFORMATION
  Report Type: Spontaneous
  Country: SE (occurrence: SE)
  Receive Date: 20241213
  Receipt Date: 20241213
  Transmission Date: 20250115
  Serious: Yes (Life-Threatening, Hospitalization, Other)
  Sender: MYLAN
  Company Number: SE-CHEPLA-2024015057

PATIENT
  Age: 25 Year
  Sex: Female

DRUGS (7)
  1. OLANZAPINE [Suspect]
     Active Substance: OLANZAPINE
     Indication: Product used for unknown indication
     Dosage: UNK
     Route: 065
  2. BUPROPION [Concomitant]
     Active Substance: BUPROPION
     Dosage: 37.5 GRAM (250 TABLETS (150 MG = 37.5 G BUPROPION))
     Route: 065
  3. ALPRAZOLAM [Concomitant]
     Active Substance: ALPRAZOLAM
     Dosage: UNK
     Route: 065
  4. DIAZEPAM [Concomitant]
     Active Substance: DIAZEPAM
     Dosage: UNK
     Route: 065
  5. ZOLPIDEM [Concomitant]
     Active Substance: ZOLPIDEM TARTRATE
     Dosage: UNK
     Route: 065
  6. TRIMEPRAZINE [Concomitant]
     Active Substance: TRIMEPRAZINE
     Dosage: UNK
     Route: 065
  7. METHYLPHENIDATE [Concomitant]
     Active Substance: METHYLPHENIDATE
     Dosage: UNK
     Route: 065

REACTIONS (4)
  - Hypotension [Unknown]
  - Arrhythmia [Unknown]
  - Cardiac arrest [Unknown]
  - Loss of consciousness [Unknown]
